FAERS Safety Report 5392401-2 (Version None)
Quarter: 2007Q3

REPORT INFORMATION
  Report Type: 
  Country: None (occurrence: None)
  Receive Date: 20070720
  Receipt Date: 20070709
  Transmission Date: 20080115
  Serious: Yes (Hospitalization)
  Sender: FDA-Public Use
  Company Number: B0474961A

PATIENT
  Age: 50 Year
  Sex: Male
  Weight: 111.6 kg

DRUGS (4)
  1. PAZOPANIB [Suspect]
     Indication: MALIGNANT GLIOMA
     Dosage: 800MG PER DAY
     Route: 048
     Dates: start: 20070417, end: 20070531
  2. LAPATINIB [Suspect]
     Indication: MALIGNANT GLIOMA
     Dosage: 1500MG PER DAY
     Route: 048
     Dates: start: 20070417, end: 20070531
  3. CARBAMAZEPINE [Suspect]
     Dosage: 300MG TWICE PER DAY
     Route: 048
     Dates: start: 20051201
  4. FLUCLOXACILLIN [Suspect]
     Dosage: 1G FOUR TIMES PER DAY
     Route: 048
     Dates: start: 20070515, end: 20070529

REACTIONS (10)
  - ALANINE AMINOTRANSFERASE INCREASED [None]
  - APHASIA [None]
  - ASPARTATE AMINOTRANSFERASE INCREASED [None]
  - CEREBRAL HAEMORRHAGE [None]
  - DISEASE PROGRESSION [None]
  - FURUNCLE [None]
  - HEMIPARESIS [None]
  - OEDEMA [None]
  - PARALYSIS [None]
  - SOMNOLENCE [None]
